FAERS Safety Report 13424927 (Version 2)
Quarter: 2017Q3

REPORT INFORMATION
  Report Type: Report from Study
  Country: US (occurrence: US)
  Receive Date: 20170410
  Receipt Date: 20170831
  Transmission Date: 20171127
  Serious: No
  Sender: FDA-Public Use
  Company Number: US-AMGEN-USASL2017052421

PATIENT
  Age: 53 Year
  Sex: Female

DRUGS (1)
  1. ENBREL [Suspect]
     Active Substance: ETANERCEPT
     Indication: RHEUMATOID ARTHRITIS
     Dosage: 50 MG, QWK
     Route: 065

REACTIONS (15)
  - Headache [Unknown]
  - Toothache [Unknown]
  - Eye pain [Unknown]
  - Facial pain [Unknown]
  - Injection site swelling [Recovering/Resolving]
  - Diarrhoea [Unknown]
  - Varicose vein [Unknown]
  - Back pain [Unknown]
  - Injection site reaction [Unknown]
  - Gait disturbance [Unknown]
  - Pain in extremity [Recovering/Resolving]
  - Vomiting [Unknown]
  - Drug effect incomplete [Unknown]
  - Injection site erythema [Recovering/Resolving]
  - Neck pain [Unknown]

NARRATIVE: CASE EVENT DATE: 20170824
